FAERS Safety Report 7719792-9 (Version None)
Quarter: 2011Q3

REPORT INFORMATION
  Report Type: 
  Country: None (occurrence: None)
  Receive Date: 20110831
  Receipt Date: 20090611
  Transmission Date: 20111222
  Serious: No
  Sender: FDA-Public Use
  Company Number: US-BIOGENIDEC-2009BI018048

PATIENT
  Age: 53 Year
  Sex: Male

DRUGS (2)
  1. TYSABRI [Suspect]
     Indication: MULTIPLE SCLEROSIS
     Route: 042
     Dates: start: 20081016, end: 20090317
  2. TYSABRI [Suspect]
     Route: 042
     Dates: start: 20110627

REACTIONS (2)
  - GAIT DISTURBANCE [None]
  - MELANOCYTIC NAEVUS [None]
